FAERS Safety Report 4720243-7 (Version None)
Quarter: 2005Q3

REPORT INFORMATION
  Report Type: 
  Country: None (occurrence: None)
  Receive Date: 20050721
  Receipt Date: 20050712
  Transmission Date: 20060218
  Serious: Yes (Hospitalization, Disabling)
  Sender: FDA-Public Use
  Company Number: IL-JNJFOC-20050702761

PATIENT
  Age: 9 Year
  Sex: Male
  Weight: 37 kg

DRUGS (3)
  1. TOPAMAX [Suspect]
     Route: 065
     Dates: start: 20050502, end: 20050516
  2. LAMICTAL [Concomitant]
     Route: 065
  3. TEGRETOL [Concomitant]
     Route: 065

REACTIONS (2)
  - CHOREOATHETOSIS [None]
  - DYSKINESIA [None]
